FAERS Safety Report 9935890 (Version 1)
Quarter: 2014Q1

REPORT INFORMATION
  Report Type: Spontaneous
  Country: US (occurrence: US)
  Receive Date: 20140228
  Receipt Date: 20140228
  Transmission Date: 20141002
  Serious: No
  Sender: FDA-Public Use
  Company Number: US-AMGEN-USASP2013073078

PATIENT
  Age: 57 Year
  Sex: Male
  Weight: 86.17 kg

DRUGS (3)
  1. ENBREL [Suspect]
     Indication: PRODUCT USED FOR UNKNOWN INDICATION
     Dosage: 50 MG, QWK
     Route: 058
  2. DOVONEX [Concomitant]
     Dosage: 0.005%,UNK
  3. MULTI VITAMIN [Concomitant]
     Dosage: UNK

REACTIONS (1)
  - White blood cell count increased [Unknown]
